FAERS Safety Report 9824915 (Version 2)
Quarter: 2014Q1

REPORT INFORMATION
  Report Type: Spontaneous
  Country: US (occurrence: US)
  Receive Date: 20140117
  Receipt Date: 20140221
  Transmission Date: 20141002
  Serious: Yes (Hospitalization, Other)
  Sender: FDA-Public Use
  Company Number: US-BRISTOL-MYERS SQUIBB COMPANY-20020780

PATIENT
  Age: 55 Year
  Sex: Female
  Weight: 72.56 kg

DRUGS (6)
  1. PRAVACHOL [Suspect]
     Indication: HYPERLIPIDAEMIA
     Route: 048
     Dates: start: 20080515
  2. GABAPENTIN [Concomitant]
  3. GLIPIZIDE [Concomitant]
  4. GLYBURIDE [Concomitant]
  5. LISINOPRIL [Concomitant]
  6. OXYBUTYNIN [Concomitant]

REACTIONS (2)
  - Myocardial infarction [Unknown]
  - Diabetes mellitus [Unknown]
